FAERS Safety Report 7883447-0 (Version None)
Quarter: 2011Q4

REPORT INFORMATION
  Report Type: 
  Country: None (occurrence: None)
  Receive Date: 20111102
  Receipt Date: 20111028
  Transmission Date: 20120403
  Serious: Yes (Hospitalization)
  Sender: FDA-Public Use
  Company Number: DE-BAYER-2011-103158

PATIENT
  Age: 29 Year
  Sex: Female
  Weight: 70 kg

DRUGS (2)
  1. LEVONORGESTREL + ETHINYL ESTRADIOL [Suspect]
     Indication: ORAL CONTRACEPTION
     Dosage: 1 DF, QD
     Route: 048
     Dates: start: 20060101, end: 20110101
  2. THYROXIN [Concomitant]
     Dosage: 1 DF, QD

REACTIONS (3)
  - VOMITING [None]
  - HEPATIC HAEMORRHAGE [None]
  - HEPATIC ADENOMA [None]
